FAERS Safety Report 19233741 (Version 1)
Quarter: 2021Q2

REPORT INFORMATION
  Report Type: Spontaneous
  Country: CA (occurrence: CA)
  Receive Date: 20210507
  Receipt Date: 20210507
  Transmission Date: 20210717
  Serious: Yes (Other)
  Sender: FDA-Public Use
  Company Number: CA-ALLERGAN-2117098US

PATIENT
  Sex: Female

DRUGS (3)
  1. BLOOD PRESSURE MEDICATION [Concomitant]
     Active Substance: UNSPECIFIED INGREDIENT
  2. FOSFOMYCIN TROMETHAMINE ? BP [Suspect]
     Active Substance: FOSFOMYCIN TROMETHAMINE
     Dosage: 1 DF
     Dates: start: 20210420, end: 20210420
  3. FOSFOMYCIN TROMETHAMINE ? BP [Suspect]
     Active Substance: FOSFOMYCIN TROMETHAMINE
     Indication: URINARY TRACT INFECTION
     Dosage: 2 DF, QD
     Dates: start: 20210421, end: 20210421

REACTIONS (12)
  - Blood urine present [Not Recovered/Not Resolved]
  - Extra dose administered [Unknown]
  - Overdose [Unknown]
  - Rhinorrhoea [Not Recovered/Not Resolved]
  - Dizziness [Not Recovered/Not Resolved]
  - Diarrhoea [Not Recovered/Not Resolved]
  - Somnolence [Not Recovered/Not Resolved]
  - Off label use [Unknown]
  - Nausea [Not Recovered/Not Resolved]
  - Hypertension [Not Recovered/Not Resolved]
  - Heart rate decreased [Not Recovered/Not Resolved]
  - Drug ineffective [Unknown]

NARRATIVE: CASE EVENT DATE: 202104
